FAERS Safety Report 6432636-0 (Version None)
Quarter: 2009Q4

REPORT INFORMATION
  Report Type: 
  Country: None (occurrence: None)
  Receive Date: 20091109
  Receipt Date: 20091104
  Transmission Date: 20100525
  Serious: Yes (Other)
  Sender: FDA-Public Use
  Company Number: CA-ELI_LILLY_AND_COMPANY-CA200911001338

PATIENT
  Sex: Female

DRUGS (3)
  1. HUMULIN N [Suspect]
     Dates: start: 19810101
  2. HUMULIN N [Suspect]
     Dosage: 20 U, EACH MORNING
  3. HUMULIN N [Suspect]
     Dosage: 30 U, EACH EVENING

REACTIONS (5)
  - ANXIETY [None]
  - BLOOD GLUCOSE DECREASED [None]
  - BLOOD GLUCOSE INCREASED [None]
  - EYE HAEMORRHAGE [None]
  - EYE INFLAMMATION [None]
